FAERS Safety Report 18654941 (Version 1)
Quarter: 2020Q4

REPORT INFORMATION
  Report Type: Spontaneous
  Country: US (occurrence: US)
  Receive Date: 20201223
  Receipt Date: 20201223
  Transmission Date: 20210114
  Serious: No
  Sender: FDA-Public Use
  Company Number: US-COOPERSURGICAL, INC.-US-2019CPS003651

PATIENT
  Age: 28 Year
  Sex: Female
  Weight: 52.15 kg

DRUGS (6)
  1. PARAGARD T 380A [Suspect]
     Active Substance: COPPER
     Indication: CONTRACEPTION
     Dosage: UNK
     Route: 015
     Dates: start: 20190823, end: 20191025
  2. TURMERIC                           /01079601/ [Concomitant]
     Active Substance: HERBALS\TURMERIC
     Indication: INFLAMMATION
     Dosage: UNK
     Route: 065
  3. DIGESTIVE ENZYME [Concomitant]
     Active Substance: UNSPECIFIED INGREDIENT
     Indication: ABDOMINAL DISCOMFORT
     Dosage: UNK
     Route: 065
  4. VITAMIN D                          /00107901/ [Concomitant]
     Active Substance: ERGOCALCIFEROL
     Indication: VITAMIN SUPPLEMENTATION
     Dosage: UNK
     Route: 065
  5. FISH OIL [Concomitant]
     Active Substance: FISH OIL
     Indication: VITAMIN SUPPLEMENTATION
     Dosage: UNK
     Route: 065
  6. PROBIOTICS                         /07325001/ [Concomitant]
     Active Substance: BIFIDOBACTERIUM LONGUM\LACTOBACILLUS ACIDOPHILUS\LACTOBACILLUS RHAMNOSUS
     Indication: VITAMIN SUPPLEMENTATION
     Dosage: UNK
     Route: 065

REACTIONS (6)
  - Back pain [Recovered/Resolved]
  - Menorrhagia [Recovered/Resolved]
  - Abdominal pain lower [Recovered/Resolved]
  - Device expulsion [Recovered/Resolved]
  - Urinary tract infection [Unknown]
  - Metrorrhagia [Recovered/Resolved]

NARRATIVE: CASE EVENT DATE: 20191022
